FAERS Safety Report 9391557 (Version 5)
Quarter: 2014Q3

REPORT INFORMATION
  Report Type: Spontaneous
  Country: DE (occurrence: DE)
  Receive Date: 20130709
  Receipt Date: 20140919
  Transmission Date: 20150326
  Serious: Yes (Death, Hospitalization, Other)
  Sender: FDA-Public Use
  Company Number: DE-JNJFOC-20130702763

PATIENT
  Age: 57 Year
  Sex: Male
  Weight: 75 kg

DRUGS (5)
  1. METHOTREXATE [Suspect]
     Active Substance: METHOTREXATE
     Indication: PSORIASIS
     Route: 065
     Dates: start: 2010, end: 201210
  2. STELARA [Suspect]
     Active Substance: USTEKINUMAB
     Indication: PSORIASIS
     Route: 058
     Dates: start: 20130531
  3. RIFAMPICIN [Concomitant]
     Active Substance: RIFAMPIN
     Indication: LATENT TUBERCULOSIS
     Route: 065
  4. PYRAZINAMID [Concomitant]
     Indication: LATENT TUBERCULOSIS
     Route: 065
  5. ETHAMBUTOL [Concomitant]
     Active Substance: ETHAMBUTOL HYDROCHLORIDE
     Indication: LATENT TUBERCULOSIS
     Route: 065

REACTIONS (14)
  - Acute abdomen [Unknown]
  - Colitis [Unknown]
  - Diarrhoea [Unknown]
  - Gastrointestinal haemorrhage [Fatal]
  - Renal failure acute [Unknown]
  - Abdominal pain [Unknown]
  - Anuria [Unknown]
  - Enteritis [Unknown]
  - Multi-organ failure [Fatal]
  - Sepsis [Unknown]
  - Latent tuberculosis [Unknown]
  - Shock haemorrhagic [Fatal]
  - Nausea [Unknown]
  - Vomiting [Unknown]

NARRATIVE: CASE EVENT DATE: 20130601
